FAERS Safety Report 4622927-8 (Version None)
Quarter: 2005Q1

REPORT INFORMATION
  Report Type: 
  Country: None (occurrence: None)
  Receive Date: 20050330
  Receipt Date: 20050310
  Transmission Date: 20050727
  Serious: Yes (Hospitalization)
  Sender: FDA-Public Use
  Company Number: PHBS2005JP03436

PATIENT
  Age: 84 Year
  Sex: Male

DRUGS (3)
  1. STARSIS [Suspect]
     Indication: DIABETES MELLITUS
     Dosage: 270 MG, QD
     Route: 048
     Dates: start: 20000201, end: 20050224
  2. NU-LOTAN [Suspect]
     Dosage: 25 MG, UNK
     Route: 048
     Dates: start: 20040801, end: 20050224
  3. ALOSITOL [Suspect]
     Dosage: 100 MG, UNK
     Route: 048
     Dates: start: 20030801, end: 20050224

REACTIONS (2)
  - LIVER DISORDER [None]
  - RHABDOMYOLYSIS [None]
